FAERS Safety Report 10103481 (Version 2)
Quarter: 2019Q2

REPORT INFORMATION
  Report Type: Spontaneous
  Country: CA (occurrence: CA)
  Receive Date: 20140424
  Receipt Date: 20190425
  Transmission Date: 20190711
  Serious: Yes (Hospitalization, Other)
  Sender: FDA-Public Use
  Company Number: CA-PFIZER INC-2014111468

PATIENT
  Age: 63 Year
  Sex: Female

DRUGS (26)
  1. PREVACID [Concomitant]
     Active Substance: LANSOPRAZOLE
  2. EMPRACET [PARACETAMOL] [Concomitant]
  3. DIGOXIN IMMUNE FAB (OVINE) [Concomitant]
     Active Substance: OVINE DIGOXIN IMMUNE FAB
  4. ADALAT CC [Concomitant]
     Active Substance: NIFEDIPINE
     Dosage: UNK
  5. WARFARIN [Suspect]
     Active Substance: WARFARIN
     Indication: ATRIAL FIBRILLATION
     Dosage: 50 MG, AS NEEDED
     Route: 048
  6. HYDROCHLOROTHIAZIDE. [Concomitant]
     Active Substance: HYDROCHLOROTHIAZIDE
  7. NEXIUM [Concomitant]
     Active Substance: ESOMEPRAZOLE MAGNESIUM
  8. TYLENOL [Concomitant]
     Active Substance: ACETAMINOPHEN
     Dosage: UNK
  9. IBUPROFEN. [Suspect]
     Active Substance: IBUPROFEN
     Indication: OSTEOARTHRITIS
     Dosage: UNK, 3X/DAY
     Route: 048
  10. HEPARIN SODIUM. [Concomitant]
     Active Substance: HEPARIN SODIUM
     Dosage: UNK
     Route: 042
  11. NIFEDIPINE. [Concomitant]
     Active Substance: NIFEDIPINE
  12. ACETAMINOPHEN. [Concomitant]
     Active Substance: ACETAMINOPHEN
  13. DIOVAN [Concomitant]
     Active Substance: VALSARTAN
  14. HYDROXYCHLOROQUINE SULFATE. [Concomitant]
     Active Substance: HYDROXYCHLOROQUINE SULFATE
  15. DIGOXIN. [Concomitant]
     Active Substance: DIGOXIN
     Dosage: UNK
  16. ACETAMINOPHEN AND CODEINE [Concomitant]
     Active Substance: ACETAMINOPHEN\CODEINE PHOSPHATE
  17. KETODERM [KETOCONAZOLE] [Concomitant]
     Dosage: UNK
  18. CELEBREX [Suspect]
     Active Substance: CELECOXIB
     Dosage: UNK
  19. CELECOXIB. [Suspect]
     Active Substance: CELECOXIB
     Indication: OSTEOARTHRITIS
     Dosage: UNK
     Route: 048
  20. COUMADIN [Concomitant]
     Active Substance: WARFARIN SODIUM
  21. K-DUR [Concomitant]
     Active Substance: POTASSIUM CHLORIDE
  22. KETOCONAZOLE. [Concomitant]
     Active Substance: KETOCONAZOLE
  23. NAPROXEN. [Suspect]
     Active Substance: NAPROXEN
     Indication: OSTEOARTHRITIS
     Dosage: UNK
     Route: 048
  24. PLACEBO [Suspect]
     Active Substance: UNSPECIFIED INGREDIENT
     Indication: OSTEOARTHRITIS
     Dosage: UNK
     Route: 048
  25. LOPRESSOR [Concomitant]
     Active Substance: METOPROLOL TARTRATE
  26. METOPROLOL. [Concomitant]
     Active Substance: METOPROLOL

REACTIONS (3)
  - Abdominal wall haematoma [Not Recovered/Not Resolved]
  - Abdominal pain [Not Recovered/Not Resolved]
  - Haemoglobin decreased [Not Recovered/Not Resolved]
